FAERS Safety Report 10917694 (Version 1)
Quarter: 2015Q1

REPORT INFORMATION
  Report Type: Spontaneous
  Country: US (occurrence: None)
  Receive Date: 20150311
  Receipt Date: 20150311
  Transmission Date: 20150721
  Serious: No
  Sender: FDA-Public Use
  Company Number: 1210513-2015-00078

PATIENT
  Sex: Female

DRUGS (1)
  1. SF 5000 PLUS [Suspect]
     Active Substance: SODIUM FLUORIDE
     Indication: DENTAL CARIES
     Route: 048
     Dates: start: 20120301, end: 20120601

REACTIONS (1)
  - Tooth disorder [None]

NARRATIVE: CASE EVENT DATE: 20120601
